FAERS Safety Report 25104811 (Version 1)
Quarter: 2025Q1

REPORT INFORMATION
  Report Type: Spontaneous
  Country: US (occurrence: US)
  Receive Date: 20250321
  Receipt Date: 20250321
  Transmission Date: 20250409
  Serious: Yes (Life-Threatening, Hospitalization, Other)
  Sender: MANKIND PHARMA
  Company Number: US-MankindUS-000344

PATIENT
  Age: 67 Year
  Sex: Female

DRUGS (9)
  1. PANTOPRAZOLE SODIUM [Suspect]
     Active Substance: PANTOPRAZOLE SODIUM
  2. METOPROLOL [Suspect]
     Active Substance: METOPROLOL
  3. AMLODIPINE [Suspect]
     Active Substance: AMLODIPINE BESYLATE
  4. MIRTAZAPINE [Suspect]
     Active Substance: MIRTAZAPINE
  5. QUETIAPINE [Suspect]
     Active Substance: QUETIAPINE
  6. LEVETIRACETAM [Suspect]
     Active Substance: LEVETIRACETAM
  7. LEVOTHYROXINE [Suspect]
     Active Substance: LEVOTHYROXINE
  8. MELATONIN [Suspect]
     Active Substance: MELATONIN
  9. QUETIAPINE [Suspect]
     Active Substance: QUETIAPINE
     Indication: Product used for unknown indication

REACTIONS (8)
  - Intentional overdose [Unknown]
  - Hypotension [Recovered/Resolved]
  - Mental status changes [Recovered/Resolved]
  - Respiratory failure [Recovered/Resolved]
  - Suicide attempt [Unknown]
  - Vasoplegia syndrome [Recovered/Resolved]
  - Metabolic acidosis [Recovered/Resolved]
  - Blood creatinine increased [Recovered/Resolved]
